FAERS Safety Report 4822307-6 (Version None)
Quarter: 2005Q4

REPORT INFORMATION
  Report Type: 
  Country: None (occurrence: None)
  Receive Date: 20051103
  Receipt Date: 20051019
  Transmission Date: 20060501
  Serious: Yes (Death)
  Sender: FDA-Public Use
  Company Number: GBS050918528

PATIENT
  Age: 61 Year
  Sex: Male
  Weight: 73 kg

DRUGS (5)
  1. FORTEO [Suspect]
     Indication: OSTEOPOROSIS
     Dosage: 20 UG
     Dates: start: 20050813
  2. MORPHINE SULFATE [Concomitant]
  3. AMITRIPTYLINE HCL [Concomitant]
  4. ORAMORPH SR [Concomitant]
  5. TEMAZEPAM [Concomitant]

REACTIONS (2)
  - LOWER RESPIRATORY TRACT INFECTION [None]
  - PAIN [None]
